FAERS Safety Report 11823209 (Version 2)
Quarter: 2016Q1

REPORT INFORMATION
  Report Type: Spontaneous
  Country: HR (occurrence: HR)
  Receive Date: 20151210
  Receipt Date: 20160212
  Transmission Date: 20160525
  Serious: Yes (Death)
  Sender: FDA-Public Use
  Company Number: HR-CELGENE-HRV-2015117868

PATIENT
  Age: 79 Year
  Sex: Male

DRUGS (3)
  1. ENEMA (SODIUM PHOSPHATE, DIBASIC\SODIUM PHOSPHATE, MONOBASIC) [Concomitant]
     Active Substance: SODIUM PHOSPHATE, DIBASIC\SODIUM PHOSPHATE, MONOBASIC
     Indication: LAXATIVE SUPPORTIVE CARE
     Route: 065
     Dates: start: 201502, end: 201505
  2. AZACITIDINE. [Suspect]
     Active Substance: AZACITIDINE
     Indication: ACUTE MYELOID LEUKAEMIA
     Dosage: 75 MILLIGRAM/SQ. METER
     Route: 058
     Dates: start: 20140725, end: 20150604
  3. LACTULOSE. [Concomitant]
     Active Substance: LACTULOSE
     Indication: LAXATIVE SUPPORTIVE CARE
     Route: 065
     Dates: start: 201501, end: 201504

REACTIONS (3)
  - Acute myeloid leukaemia recurrent [Unknown]
  - Cardio-respiratory arrest [Fatal]
  - Constipation [Unknown]

NARRATIVE: CASE EVENT DATE: 201505
